FAERS Safety Report 25459329 (Version 2)
Quarter: 2025Q3

REPORT INFORMATION
  Report Type: Spontaneous
  Country: EU (occurrence: EU)
  Receive Date: 20250620
  Receipt Date: 20250708
  Transmission Date: 20251020
  Serious: Yes (Hospitalization, Other)
  Sender: SANDOZ
  Company Number: EU-002147023-PHHY2019IT125754

PATIENT
  Age: 76 Year
  Sex: Male

DRUGS (6)
  1. EDOXABAN [Concomitant]
     Active Substance: EDOXABAN
     Indication: Anticoagulant therapy
     Route: 065
  2. EDOXABAN [Concomitant]
     Active Substance: EDOXABAN
     Route: 065
  3. IMATINIB [Interacting]
     Active Substance: IMATINIB
     Indication: Systemic scleroderma
     Route: 065
  4. IMATINIB [Interacting]
     Active Substance: IMATINIB
     Indication: Chronic myeloid leukaemia
  5. ACETAMINOPHEN [Interacting]
     Active Substance: ACETAMINOPHEN
     Indication: Sciatic nerve injury
     Route: 065
  6. ACETAMINOPHEN [Interacting]
     Active Substance: ACETAMINOPHEN
     Indication: Sciatica

REACTIONS (4)
  - Haematochezia [Unknown]
  - Drug interaction [Unknown]
  - Transaminases increased [Unknown]
  - Abdominal pain [Unknown]
